FAERS Safety Report 10302527 (Version 1)
Quarter: 2014Q3

REPORT INFORMATION
  Report Type: Spontaneous
  Country: JP (occurrence: JP)
  Receive Date: 20140714
  Receipt Date: 20140714
  Transmission Date: 20150326
  Serious: Yes (Death, Life-Threatening)
  Sender: FDA-Public Use
  Company Number: PHHY2004JP005803

PATIENT
  Age: 62 Year
  Sex: Male

DRUGS (2)
  1. GLIVEC [Suspect]
     Active Substance: IMATINIB MESYLATE
     Indication: CHRONIC MYELOID LEUKAEMIA
     Dosage: 200 MG, DAILY
     Dates: start: 20020513
  2. GLIVEC [Suspect]
     Active Substance: IMATINIB MESYLATE
     Dosage: 400 MG, UNK
     Dates: start: 20020531, end: 20041020

REACTIONS (4)
  - Pancytopenia [Unknown]
  - Gastrointestinal disorder [Unknown]
  - Pyrexia [Unknown]
  - Death [Fatal]
